FAERS Safety Report 17872663 (Version 13)
Quarter: 2022Q1

REPORT INFORMATION
  Report Type: Report from Study
  Country: CN (occurrence: CN)
  Receive Date: 20200608
  Receipt Date: 20220119
  Transmission Date: 20220423
  Serious: Yes (Life-Threatening, Hospitalization, Other)
  Sender: FDA-Public Use
  Company Number: NVSC2020CN158383

PATIENT
  Age: 79 Year
  Sex: Male
  Weight: 60 kg

DRUGS (60)
  1. ENTRESTO [Suspect]
     Active Substance: SACUBITRIL\VALSARTAN
     Indication: Cardiac failure chronic
     Dosage: 25 MG, BID
     Route: 048
     Dates: start: 20200421, end: 20200528
  2. ENTRESTO [Suspect]
     Active Substance: SACUBITRIL\VALSARTAN
     Dosage: 25 MG, BID
     Route: 048
     Dates: start: 20200601
  3. TORSEMIDE [Concomitant]
     Active Substance: TORSEMIDE
     Indication: Diuretic therapy
     Dosage: 20 MG, UNKNOWN
     Route: 065
     Dates: start: 20200601, end: 20200602
  4. TORSEMIDE [Concomitant]
     Active Substance: TORSEMIDE
     Dosage: 20 MG, UNKNOWN
     Route: 065
     Dates: start: 20200604, end: 20200605
  5. TORSEMIDE [Concomitant]
     Active Substance: TORSEMIDE
     Dosage: 20 MG, UNKNOWN
     Route: 065
     Dates: start: 20200802, end: 20200803
  6. ATORVASTATIN CALCIUM [Concomitant]
     Active Substance: ATORVASTATIN CALCIUM
     Indication: Dyslipidaemia
     Dosage: 20 MG, UNKNOWN
     Route: 065
     Dates: start: 20200601
  7. ATORVASTATIN CALCIUM [Concomitant]
     Active Substance: ATORVASTATIN CALCIUM
     Indication: Arteriosclerosis
     Dosage: 20 MG, UNKNOWN
     Route: 065
     Dates: start: 20200713, end: 20200730
  8. ATORVASTATIN CALCIUM [Concomitant]
     Active Substance: ATORVASTATIN CALCIUM
     Indication: Dyslipidaemia
     Dosage: 20 MG, UNKNOWN
     Route: 065
     Dates: start: 20200802, end: 20200807
  9. ATORVASTATIN CALCIUM [Concomitant]
     Active Substance: ATORVASTATIN CALCIUM
     Dosage: 20 UNK
     Route: 065
     Dates: start: 20200917, end: 20200923
  10. ATORVASTATIN CALCIUM [Concomitant]
     Active Substance: ATORVASTATIN CALCIUM
     Dosage: 20 MG, UNKNOWN
     Route: 065
     Dates: start: 20201121, end: 20201127
  11. ATORVASTATIN CALCIUM [Concomitant]
     Active Substance: ATORVASTATIN CALCIUM
     Dosage: 20 MG, UNKNOWN
     Route: 065
     Dates: start: 20210116, end: 20210116
  12. ATORVASTATIN CALCIUM [Concomitant]
     Active Substance: ATORVASTATIN CALCIUM
     Dosage: 20 MG, UNKNOWN
     Route: 065
     Dates: start: 20210124
  13. RIVAROXABAN [Concomitant]
     Active Substance: RIVAROXABAN
     Indication: Anticoagulant therapy
     Dosage: 15 MG, UNKNOWN
     Route: 065
     Dates: start: 20200601
  14. RIVAROXABAN [Concomitant]
     Active Substance: RIVAROXABAN
     Dosage: 20 MG, UNKNOWN
     Route: 065
     Dates: start: 20200713, end: 20200730
  15. RIVAROXABAN [Concomitant]
     Active Substance: RIVAROXABAN
     Dosage: 20 MG, UNKNOWN
     Route: 065
     Dates: start: 20200802, end: 20200810
  16. RIVAROXABAN [Concomitant]
     Active Substance: RIVAROXABAN
     Dosage: K5 MG, UNKNOWN
     Route: 065
     Dates: start: 20201121, end: 20201127
  17. RIVAROXABAN [Concomitant]
     Active Substance: RIVAROXABAN
     Dosage: 15 MG, UNKNOWN
     Route: 065
     Dates: start: 20210116, end: 20210116
  18. RIVAROXABAN [Concomitant]
     Active Substance: RIVAROXABAN
     Dosage: 15 MG, UNKNOWN
     Route: 065
     Dates: start: 20210124
  19. METOPROLOL [Concomitant]
     Active Substance: METOPROLOL
     Indication: Oxygen consumption
     Dosage: 23.75 MG, UNKNOWN
     Route: 065
     Dates: start: 20200601
  20. CREATINE [Concomitant]
     Active Substance: CREATINE
     Indication: Nutritional supplementation
     Dosage: 1 G, UNKNOWN
     Route: 065
     Dates: start: 20200601, end: 20200602
  21. CREATINE [Concomitant]
     Active Substance: CREATINE
     Dosage: 1 G, UNKNOWN
     Route: 065
     Dates: start: 20200604, end: 20200604
  22. CREATINE [Concomitant]
     Active Substance: CREATINE
     Dosage: 1 G, UNKNOWN
     Route: 065
     Dates: start: 20200718, end: 20200729
  23. AMBROXOL [Concomitant]
     Active Substance: AMBROXOL
     Indication: Productive cough
     Dosage: 60 MG, UNKNOWN
     Route: 065
     Dates: start: 20200602
  24. AMBROXOL [Concomitant]
     Active Substance: AMBROXOL
     Dosage: 30 MG, UNKNOWN
     Route: 065
     Dates: start: 20210116, end: 20210116
  25. AMBROXOL [Concomitant]
     Active Substance: AMBROXOL
     Dosage: 30 MG, UNKNOWN
     Route: 065
     Dates: start: 20210124
  26. IPRATROPIUM BROMIDE [Concomitant]
     Active Substance: IPRATROPIUM BROMIDE
     Indication: Asthma
     Dosage: 500 UG, UNKNOWN
     Route: 065
     Dates: start: 20200602, end: 20200610
  27. BUDESONIDE [Concomitant]
     Active Substance: BUDESONIDE
     Indication: Asthma
     Dosage: 1 MG (SUSPENSION FOR INHALATION)
     Route: 065
     Dates: start: 20200602, end: 20200610
  28. MONTELUKAST SODIUM [Concomitant]
     Active Substance: MONTELUKAST SODIUM
     Indication: Asthma
     Dosage: 10 MG, UNKNOWN
     Route: 065
     Dates: start: 20200602
  29. MONTELUKAST SODIUM [Concomitant]
     Active Substance: MONTELUKAST SODIUM
     Dosage: 10 MG, UNKNOWN
     Route: 065
     Dates: start: 20200802, end: 20200807
  30. MONTELUKAST SODIUM [Concomitant]
     Active Substance: MONTELUKAST SODIUM
     Dosage: 10 MG, UNKNOWN
     Route: 065
     Dates: start: 20210116, end: 20210116
  31. MONTELUKAST SODIUM [Concomitant]
     Active Substance: MONTELUKAST SODIUM
     Dosage: 10 MG, UNKNOWN
     Route: 065
     Dates: start: 20210124
  32. DIGOXIN [Concomitant]
     Active Substance: DIGOXIN
     Indication: Cardiac failure
     Dosage: 0.125 MG, QD
     Route: 065
     Dates: start: 20200602
  33. DIGOXIN [Concomitant]
     Active Substance: DIGOXIN
     Dosage: 0.125 MG, UNKNOWN
     Route: 065
     Dates: start: 20200714, end: 20200730
  34. DIGOXIN [Concomitant]
     Active Substance: DIGOXIN
     Dosage: 0.125 MG, UNKNOWN
     Route: 065
     Dates: start: 20200802, end: 20200807
  35. AMINOPHYLLINE [Concomitant]
     Active Substance: AMINOPHYLLINE
     Indication: Asthma
     Dosage: 0.2 G, UNKNOWN
     Route: 065
     Dates: start: 20200602
  36. FUROSEMIDE [Concomitant]
     Active Substance: FUROSEMIDE
     Indication: Cardiac failure chronic
     Dosage: 20 MG, BID
     Route: 065
     Dates: start: 20200601
  37. FUROSEMIDE [Concomitant]
     Active Substance: FUROSEMIDE
     Indication: Polyuria
     Dosage: 20 MG, UNKNOWN
     Route: 065
     Dates: start: 20200730, end: 20200730
  38. FUROSEMIDE [Concomitant]
     Active Substance: FUROSEMIDE
     Dosage: 20 MG, UNKNOWN
     Route: 065
     Dates: start: 20201121, end: 20201124
  39. FUROSEMIDE [Concomitant]
     Active Substance: FUROSEMIDE
     Dosage: 20 MG, UNKNOWN
     Route: 065
     Dates: start: 20210116, end: 20210116
  40. FUROSEMIDE [Concomitant]
     Active Substance: FUROSEMIDE
     Dosage: 20 MG, UNKNOWN
     Route: 065
     Dates: start: 20210124
  41. SPIRONOLACTONE [Concomitant]
     Active Substance: SPIRONOLACTONE
     Indication: Cardiac failure chronic
     Dosage: 20 MG, QD
     Route: 065
  42. SPIRONOLACTONE [Concomitant]
     Active Substance: SPIRONOLACTONE
     Indication: Polyuria
     Dosage: 20 MG, UNKNOWN
     Route: 065
     Dates: start: 20201121, end: 20201124
  43. SPIRONOLACTONE [Concomitant]
     Active Substance: SPIRONOLACTONE
     Dosage: 20 MG, UNKNOWN
     Route: 065
     Dates: start: 20210116, end: 20210116
  44. SPIRONOLACTONE [Concomitant]
     Active Substance: SPIRONOLACTONE
     Dosage: 20 MG, UNKNOWN
     Route: 065
     Dates: start: 20210124
  45. LEVOFLOXACIN HYDROCHLORIDE AND SODIUM CHLORID [Concomitant]
     Indication: Inflammation
     Dosage: 100 ML, UNKNOWN
     Route: 065
     Dates: start: 20200605, end: 20200611
  46. METHOXYPHENAMINE [Concomitant]
     Active Substance: METHOXYPHENAMINE
     Indication: Asthma
     Dosage: 2 DF (2 PILLS), UNKNOWN
     Route: 065
     Dates: start: 20200605
  47. CELECOXIB [Concomitant]
     Active Substance: CELECOXIB
     Indication: Inflammation
     Dosage: 0.2 G, UNKNOWN
     Route: 065
     Dates: start: 20200605, end: 20200610
  48. CELECOXIB [Concomitant]
     Active Substance: CELECOXIB
     Indication: Analgesic therapy
     Dosage: 0.2 G, UNKNOWN
     Route: 065
     Dates: start: 20210119, end: 20210119
  49. RABEPRAZOLE SODIUM [Concomitant]
     Active Substance: RABEPRAZOLE SODIUM
     Indication: Gastrointestinal disorder prophylaxis
     Dosage: 20 MG, UNKNOWN
     Route: 065
     Dates: start: 20200605
  50. AMLODIPINE [Concomitant]
     Active Substance: AMLODIPINE BESYLATE
     Indication: Asthma
     Dosage: 0.2 G, UNKNOWN
     Route: 065
     Dates: start: 20200802, end: 20200807
  51. BISOPROLOL [Concomitant]
     Active Substance: BISOPROLOL
     Indication: Cardiovascular event prophylaxis
     Dosage: 2.5 UNK
     Route: 065
     Dates: start: 20200917, end: 20200923
  52. BISOPROLOL [Concomitant]
     Active Substance: BISOPROLOL
     Indication: Angina pectoris
     Dosage: 2.5 MG, UNKNOWN
     Route: 065
     Dates: start: 20201121, end: 20201127
  53. BISOPROLOL [Concomitant]
     Active Substance: BISOPROLOL
     Dosage: 1.25 MG, UNKNOWN
     Route: 065
     Dates: start: 20210116, end: 20210116
  54. BISOPROLOL [Concomitant]
     Active Substance: BISOPROLOL
     Dosage: 1.25 MG, UNKNOWN
     Route: 065
     Dates: start: 20210124
  55. THEOPHYLLINE [Concomitant]
     Active Substance: THEOPHYLLINE
     Indication: Asthma prophylaxis
     Dosage: 0.1 G, UNKNOWN
     Route: 065
     Dates: start: 20201121, end: 20201127
  56. THEOPHYLLINE [Concomitant]
     Active Substance: THEOPHYLLINE
     Dosage: 0.1 G, UNKNOWN
     Route: 065
     Dates: start: 20210116, end: 20210116
  57. THEOPHYLLINE [Concomitant]
     Active Substance: THEOPHYLLINE
     Dosage: 0.1 G, UNKNOWN
     Route: 065
     Dates: start: 20210124
  58. TAMSULOSIN [Concomitant]
     Active Substance: TAMSULOSIN
     Indication: Dysuria
     Dosage: 0.2 MG, UNKNOWN
     Route: 065
     Dates: start: 20210116, end: 20210116
  59. TAMSULOSIN [Concomitant]
     Active Substance: TAMSULOSIN
     Dosage: 0.2 MG, UNKNOWN
     Route: 065
     Dates: start: 20210124
  60. CEFUROXIME [Concomitant]
     Active Substance: CEFUROXIME
     Indication: Infection
     Dosage: 1.5 G, UNKNOWN
     Route: 065
     Dates: start: 20210116, end: 20210116

REACTIONS (34)
  - Cerebral infarction [Recovering/Resolving]
  - Cough [Recovered/Resolved]
  - Cardiac failure [Recovering/Resolving]
  - Wheezing [Recovering/Resolving]
  - Chest discomfort [Recovering/Resolving]
  - Oedema peripheral [Recovering/Resolving]
  - N-terminal prohormone brain natriuretic peptide increased [Recovering/Resolving]
  - Cardiac failure acute [Recovering/Resolving]
  - Cardiac valve disease [Unknown]
  - Cerebrovascular insufficiency [Recovering/Resolving]
  - Arrhythmia [Recovering/Resolving]
  - Atrial fibrillation [Unknown]
  - Aortic arteriosclerosis [Not Recovered/Not Resolved]
  - Pulmonary artery dilatation [Not Recovered/Not Resolved]
  - Chronic obstructive pulmonary disease [Recovering/Resolving]
  - Bronchial disorder [Recovering/Resolving]
  - Pulmonary fibrosis [Unknown]
  - Pneumonitis [Recovering/Resolving]
  - Pleural adhesion [Unknown]
  - Pleural effusion [Unknown]
  - Pleural thickening [Unknown]
  - Blood creatinine increased [Not Recovered/Not Resolved]
  - Alanine aminotransferase decreased [Recovering/Resolving]
  - Spinal column injury [Not Recovered/Not Resolved]
  - Blood albumin increased [Recovering/Resolving]
  - Blood pressure decreased [Recovering/Resolving]
  - Benign prostatic hyperplasia [Recovering/Resolving]
  - Rib fracture [Not Recovered/Not Resolved]
  - Clavicle fracture [Not Recovered/Not Resolved]
  - Asthenia [Recovering/Resolving]
  - Dizziness [Recovering/Resolving]
  - Somnolence [Recovering/Resolving]
  - Gait disturbance [Recovering/Resolving]
  - Wrong technique in product usage process [Unknown]

NARRATIVE: CASE EVENT DATE: 20200401
